FAERS Safety Report 25439533 (Version 1)
Quarter: 2025Q2

REPORT INFORMATION
  Report Type: Report from Study
  Country: US (occurrence: US)
  Receive Date: 20250616
  Receipt Date: 20250616
  Transmission Date: 20250717
  Serious: Yes (Other)
  Sender: GILEAD
  Company Number: US-GILEAD-2025-0717015

PATIENT
  Age: 9 Year
  Sex: Male

DRUGS (2)
  1. AMBRISENTAN [Suspect]
     Active Substance: AMBRISENTAN
     Indication: Pulmonary arterial hypertension
     Dosage: 5 MG, QD
     Route: 050
     Dates: start: 202212
  2. TADLIQ [Concomitant]
     Active Substance: TADALAFIL

REACTIONS (2)
  - Gastrointestinal tube insertion [Unknown]
  - Product use issue [Not Recovered/Not Resolved]
